FAERS Safety Report 23608478 (Version 1)
Quarter: 2024Q1

REPORT INFORMATION
  Report Type: Spontaneous
  Country: UA (occurrence: UA)
  Receive Date: 20240307
  Receipt Date: 20240307
  Transmission Date: 20240410
  Serious: No
  Sender: FDA-Public Use
  Company Number: UA-MEN-2024-093819

PATIENT
  Age: 54 Year
  Sex: Male
  Weight: 85 kg

DRUGS (17)
  1. RANEXA [Suspect]
     Active Substance: RANOLAZINE
     Indication: Infarction
     Dosage: 1 TABLET TWICE A DAY IN THE MORNING AND IN THE EVENING
     Route: 048
     Dates: start: 20231006, end: 20231025
  2. RANEXA [Suspect]
     Active Substance: RANOLAZINE
     Dosage: 1 TABLET TWICE A DAY
     Route: 048
     Dates: start: 20240206
  3. RANEXA [Suspect]
     Active Substance: RANOLAZINE
     Dosage: 1000 MG - ? TABLET TWICE A DAY
     Route: 048
     Dates: start: 20231026
  4. RANEXA [Suspect]
     Active Substance: RANOLAZINE
     Indication: Infarction
     Dosage: 1000 MG - ? TABLET TWICE A DAY
     Route: 048
     Dates: start: 20240124, end: 20240205
  5. CORIOL [Concomitant]
     Indication: Heart rate increased
     Dosage: 4.7 MG IN THE MORNING, 6.5 MG IN 8 HOURS, 4.7 MG IN NEXT 8 HOURS
     Route: 048
     Dates: start: 20231220
  6. AMIODARONE HYDROCHLORIDE [Concomitant]
     Active Substance: AMIODARONE HYDROCHLORIDE
     Indication: Arrhythmia
     Dosage: 100 MG ONCE PER 6 DAYS
     Route: 048
     Dates: start: 20231012
  7. Coraxan [Concomitant]
     Indication: Heart rate increased
     Route: 048
     Dates: start: 20231106
  8. Inspr [Concomitant]
     Indication: Infarction
     Route: 048
     Dates: start: 20230925
  9. SACUBITRIL\VALSARTAN [Concomitant]
     Active Substance: SACUBITRIL\VALSARTAN
     Indication: Infarction
     Dosage: 150 MG, QD
     Route: 048
     Dates: start: 20231121
  10. DAPAGLIFLOZIN [Concomitant]
     Active Substance: DAPAGLIFLOZIN
     Indication: Cardiac failure
     Route: 048
     Dates: start: 20230602
  11. ASPIRIN [Concomitant]
     Active Substance: ASPIRIN
     Indication: Thrombosis prophylaxis
     Route: 048
     Dates: start: 20200529
  12. XARELTO [Concomitant]
     Active Substance: RIVAROXABAN
     Indication: Infarction
     Dosage: 5 MG, QD
     Route: 048
     Dates: start: 20230714
  13. ROSUVASTATIN CALCIUM [Concomitant]
     Active Substance: ROSUVASTATIN CALCIUM
     Indication: Lipids increased
     Route: 048
     Dates: start: 20230818
  14. PANTOPRAZOLE SODIUM [Concomitant]
     Active Substance: PANTOPRAZOLE SODIUM
     Indication: Prophylaxis against gastrointestinal ulcer
     Dosage: WITHIN 10 DAYS PER MONTH
     Route: 048
     Dates: start: 20240201, end: 20240210
  15. HERBALS\MELISSA OFFICINALIS LEAF\PEPPERMINT EXTRACT\VALERIAN [Concomitant]
     Active Substance: HERBALS\MELISSA OFFICINALIS LEAF\PEPPERMINT EXTRACT\VALERIAN
     Indication: Sedative therapy
     Dosage: 1 TABLET 2-3 TIMES A DAY
     Route: 048
     Dates: start: 20231010
  16. TEMGICOLURIL [Concomitant]
     Active Substance: TEMGICOLURIL
     Indication: Depression
     Dosage: 250 MG 1-2 TIMES A DAY
     Route: 048
     Dates: start: 20240102
  17. MAGNICUM [Concomitant]
     Indication: Magnesium deficiency
     Dosage: 1/2-1/4 OF TABLET 1-2 TIMES PER DAY
     Route: 048
     Dates: start: 20240102

REACTIONS (4)
  - No adverse event [Unknown]
  - Product use in unapproved indication [Not Recovered/Not Resolved]
  - Wrong technique in product usage process [Recovered/Resolved]
  - Product quality issue [Unknown]

NARRATIVE: CASE EVENT DATE: 20231006
